FAERS Safety Report 18231955 (Version 1)
Quarter: 2020Q3

REPORT INFORMATION
  Report Type: Spontaneous
  Country: FR (occurrence: FR)
  Receive Date: 20200904
  Receipt Date: 20200904
  Transmission Date: 20201103
  Serious: Yes (Hospitalization, Other)
  Sender: FDA-Public Use
  Company Number: FR-AXELLIA-003336

PATIENT
  Age: 67 Year
  Sex: Male

DRUGS (2)
  1. TIGECYCLINE. [Suspect]
     Active Substance: TIGECYCLINE
     Indication: ENTEROBACTER INFECTION
     Route: 042
  2. COLISTIN [Suspect]
     Active Substance: COLISTIN
     Indication: ENTEROBACTER INFECTION
     Dosage: 4.5MU BID
     Route: 042

REACTIONS (3)
  - Nausea [Recovered/Resolved]
  - Renal failure [Recovered/Resolved]
  - Decreased appetite [Recovered/Resolved]
